FAERS Safety Report 19440328 (Version 1)
Quarter: 2021Q2

REPORT INFORMATION
  Report Type: Spontaneous
  Country: PL (occurrence: PL)
  Receive Date: 20210621
  Receipt Date: 20210621
  Transmission Date: 20210717
  Serious: Yes (Other)
  Sender: FDA-Public Use
  Company Number: PL-JNJFOC-20210635763

PATIENT
  Age: 55 Year
  Sex: Male

DRUGS (7)
  1. INSULATARD [INSULIN HUMAN INJECTION, ISOPHANE] [Concomitant]
     Active Substance: INSULIN HUMAN
     Dosage: 24 UNITS
     Route: 065
  2. PREDNISONE. [Suspect]
     Active Substance: PREDNISONE
     Indication: PROSTATE CANCER METASTATIC
     Route: 065
     Dates: start: 2021
  3. ZYTIGA [Suspect]
     Active Substance: ABIRATERONE ACETATE
     Indication: PROSTATE CANCER METASTATIC
     Route: 048
     Dates: start: 2021
  4. ZOMIKOS (ZOLEDRONIC ACID) [Suspect]
     Active Substance: ZOLEDRONIC ACID
     Indication: PROSTATE CANCER METASTATIC
     Route: 065
     Dates: start: 202102
  5. NOVORAPID [Concomitant]
     Active Substance: INSULIN ASPART
     Indication: TYPE 3 DIABETES MELLITUS
     Dosage: AT 4?6 UNITS PER MEAL.
     Route: 065
  6. DIPHERELINE [TRIPTORELIN ACETATE] [Suspect]
     Active Substance: TRIPTORELIN ACETATE
     Indication: PROSTATE CANCER METASTATIC
     Route: 065
     Dates: start: 202102
  7. INSULATARD [INSULIN HUMAN INJECTION, ISOPHANE] [Concomitant]
     Active Substance: INSULIN HUMAN
     Indication: TYPE 3 DIABETES MELLITUS
     Dosage: 24 UNITS
     Route: 065

REACTIONS (1)
  - Type 3 diabetes mellitus [Unknown]

NARRATIVE: CASE EVENT DATE: 2021
